FAERS Safety Report 8370621-2 (Version None)
Quarter: 2012Q2

REPORT INFORMATION
  Report Type: 
  Country: None (occurrence: None)
  Receive Date: 20120518
  Receipt Date: 20120508
  Transmission Date: 20120825
  Serious: Yes (Other)
  Sender: FDA-Public Use
  Company Number: US-ELI_LILLY_AND_COMPANY-US201205003804

PATIENT
  Sex: Female

DRUGS (1)
  1. HUMATROPE [Suspect]
     Indication: MUSCLE ATROPHY
     Dosage: 0.25 DF, UNK

REACTIONS (4)
  - OFF LABEL USE [None]
  - ANXIETY [None]
  - AGITATION [None]
  - ATRIAL FIBRILLATION [None]
